FAERS Safety Report 20155859 (Version 1)
Quarter: 2021Q4

REPORT INFORMATION
  Report Type: Spontaneous
  Country: US (occurrence: None)
  Receive Date: 20211206
  Receipt Date: 20211206
  Transmission Date: 20220303
  Serious: Yes (Hospitalization)
  Sender: FDA-Public Use
  Company Number: None

PATIENT
  Sex: Female

DRUGS (1)
  1. COSENTYX [Suspect]
     Active Substance: SECUKINUMAB
     Indication: Psoriatic arthropathy
     Dosage: FREQUENCY : MONTHLY;?
     Route: 058
     Dates: start: 20210304

REACTIONS (8)
  - Infection [None]
  - Joint swelling [None]
  - Arthralgia [None]
  - Feeling abnormal [None]
  - Pain [None]
  - Joint swelling [None]
  - Diarrhoea [None]
  - Fatigue [None]
